FAERS Safety Report 13807890 (Version 1)
Quarter: 2017Q3

REPORT INFORMATION
  Report Type: Spontaneous
  Country: US (occurrence: US)
  Receive Date: 20170728
  Receipt Date: 20170728
  Transmission Date: 20171127
  Serious: No
  Sender: FDA-Public Use
  Company Number: US-DEPOMED, INC.-US-2017DEP000050

PATIENT
  Sex: Male

DRUGS (2)
  1. LAZANDA [Suspect]
     Active Substance: FENTANYL CITRATE
     Indication: PAIN
     Dosage: 400 MCG, 1-2 SQUIRTS EVERY 6 HOURS
     Route: 045
  2. LAZANDA [Suspect]
     Active Substance: FENTANYL CITRATE
     Dosage: 100 MCG, 1-2 SQUIRTS EVERY 6 HOURS
     Route: 045

REACTIONS (1)
  - Product use in unapproved indication [Unknown]
